FAERS Safety Report 10183030 (Version 1)
Quarter: 2014Q2

REPORT INFORMATION
  Report Type: Spontaneous
  Country: US (occurrence: US)
  Receive Date: 20140520
  Receipt Date: 20140520
  Transmission Date: 20141212
  Serious: No
  Sender: FDA-Public Use
  Company Number: US-BAYER-2014-074095

PATIENT
  Age: 2 Year
  Sex: Female
  Weight: 12.7 kg

DRUGS (1)
  1. ALEVE TABLET [Suspect]
     Dosage: PROBABLY JUST 1 DF, ONCE
     Route: 048
     Dates: start: 20140516, end: 20140516

REACTIONS (1)
  - Accidental exposure to product by child [None]
